FAERS Safety Report 7007343-6 (Version None)
Quarter: 2010Q3

REPORT INFORMATION
  Report Type: 
  Country: None (occurrence: None)
  Receive Date: 20100922
  Receipt Date: 20100916
  Transmission Date: 20110219
  Serious: Yes (Life-Threatening)
  Sender: FDA-Public Use
  Company Number: DE-CELGENEUS-062-C5013-10091500

PATIENT
  Age: 69 Year
  Sex: Male
  Weight: 98 kg

DRUGS (16)
  1. CC-5013 [Suspect]
     Indication: MULTIPLE MYELOMA
     Route: 048
     Dates: start: 20100802
  2. CC-5013 [Suspect]
     Route: 048
     Dates: start: 20100830, end: 20100915
  3. DEXAMETHASONE [Suspect]
     Indication: MULTIPLE MYELOMA
     Route: 065
     Dates: start: 20100802
  4. DEXAMETHASONE [Suspect]
     Route: 065
     Dates: start: 20100830, end: 20100915
  5. MORPHINHEMISULFAT [Concomitant]
     Route: 048
     Dates: start: 20100628, end: 20100801
  6. MORPHINHEMISULFAT [Concomitant]
     Route: 048
     Dates: start: 20100802, end: 20100803
  7. MORPHINHEMISULFAT [Concomitant]
     Route: 048
     Dates: start: 20100804, end: 20100822
  8. MORPHINHEMISULFAT [Concomitant]
     Route: 048
     Dates: start: 20100823
  9. ENOXAPRIN-NATRIUM [Concomitant]
     Indication: THROMBOSIS PROPHYLAXIS
     Route: 058
     Dates: start: 20100809
  10. PAMIDRONATE DISODIUM [Concomitant]
     Indication: PROPHYLAXIS
     Route: 051
     Dates: start: 20100629
  11. NULYTELY [Concomitant]
     Route: 048
     Dates: start: 20100601
  12. METOPROLOL [Concomitant]
     Indication: HYPERTENSION
     Route: 048
     Dates: start: 20100201
  13. FOLSAN [Concomitant]
     Indication: FOLATE DEFICIENCY
     Dosage: 8/10MG
     Route: 048
     Dates: start: 20100601
  14. PANTOPRAZOLE SODIUM [Concomitant]
     Indication: GASTRITIS PROPHYLAXIS
     Route: 048
     Dates: start: 20100601
  15. ROSICED [Concomitant]
     Route: 061
     Dates: start: 20100830
  16. CLEXANE [Concomitant]
     Indication: PRODUCT USED FOR UNKNOWN INDICATION
     Route: 065

REACTIONS (1)
  - INTESTINAL PERFORATION [None]
